FAERS Safety Report 15703986 (Version 1)
Quarter: 2018Q4

REPORT INFORMATION
  Report Type: Spontaneous
  Country: US (occurrence: US)
  Receive Date: 20181127
  Receipt Date: 20181127
  Transmission Date: 20190205
  Serious: Yes (Hospitalization)
  Sender: FDA-Public Use
  Company Number: None

PATIENT
  Age: 25 Year
  Sex: Male
  Weight: 80.7 kg

DRUGS (3)
  1. CISPLATIN. [Suspect]
     Active Substance: CISPLATIN
     Dates: end: 20160604
  2. IFOSFAMIDE. [Suspect]
     Active Substance: IFOSFAMIDE
     Dates: end: 20160604
  3. TAXOL [Suspect]
     Active Substance: PACLITAXEL
     Dates: end: 20160531

REACTIONS (10)
  - Vomiting [None]
  - Dehydration [None]
  - Neutropenia [None]
  - Nausea [None]
  - Platelet count decreased [None]
  - Culture stool positive [None]
  - Pyrexia [None]
  - Diarrhoea [None]
  - Clostridium test positive [None]
  - Platelet transfusion [None]

NARRATIVE: CASE EVENT DATE: 20160606
